FAERS Safety Report 15612960 (Version 1)
Quarter: 2018Q4

REPORT INFORMATION
  Report Type: Spontaneous
  Country: AU (occurrence: AU)
  Receive Date: 20181113
  Receipt Date: 20181113
  Transmission Date: 20190205
  Serious: Yes (Other)
  Sender: FDA-Public Use
  Company Number: AU-PFIZER INC-2018460782

PATIENT
  Age: 52 Year
  Sex: Female

DRUGS (7)
  1. CABERGOLINE. [Suspect]
     Active Substance: CABERGOLINE
     Indication: PROLACTIN-PRODUCING PITUITARY TUMOUR
     Dosage: 2 MG, WEEKLY
     Dates: start: 1997
  2. CABERGOLINE. [Suspect]
     Active Substance: CABERGOLINE
     Dosage: 7 MG, WEEKLY (SUBSEQUENTLY INCREASED TO 6 TO 7 MG WEEKLY OVER TIME)
     Dates: start: 1997
  3. CABERGOLINE. [Suspect]
     Active Substance: CABERGOLINE
     Dosage: 6 MG, WEEKLY (SUBSEQUENTLY INCREASED TO 6 TO 7 MG WEEKLY OVER TIME)
     Dates: start: 1997
  4. CABERGOLINE. [Suspect]
     Active Substance: CABERGOLINE
     Dosage: UNK (HIGH DOSES)
     Dates: start: 2004
  5. CABERGOLINE. [Suspect]
     Active Substance: CABERGOLINE
     Dosage: 6 MG, WEEKLY (CUMULATIVE DOSE WAS 3272 MG)
     Dates: start: 2009
  6. CABERGOLINE. [Suspect]
     Active Substance: CABERGOLINE
     Dosage: 3 MG, WEEKLY (CUMULATIVE DOSE OF CABERGOLINE AT THAT POINT WAS 4192 MG)
     Dates: start: 2016, end: 201704
  7. CABERGOLINE. [Suspect]
     Active Substance: CABERGOLINE
     Dosage: 0.5 MG, UNK (EVERY 6 MONTHS)
     Dates: start: 2012, end: 2012

REACTIONS (1)
  - Cardiac valve disease [Recovering/Resolving]

NARRATIVE: CASE EVENT DATE: 2016
